FAERS Safety Report 9370735 (Version 3)
Quarter: 2015Q2

REPORT INFORMATION
  Report Type: Report from Study
  Country: AU (occurrence: AU)
  Receive Date: 20130626
  Receipt Date: 20150423
  Transmission Date: 20150821
  Serious: Yes (Death, Hospitalization)
  Sender: FDA-Public Use
  Company Number: AU-ASTRAZENECA-2013SE47481

PATIENT
  Age: 26936 Day
  Sex: Male

DRUGS (4)
  1. ZOLADEX [Suspect]
     Active Substance: GOSERELIN ACETATE
     Indication: PROSTATE CANCER
     Route: 058
     Dates: start: 19990901
  2. ZOLADEX [Suspect]
     Active Substance: GOSERELIN ACETATE
     Indication: PROSTATE CANCER
     Route: 058
     Dates: start: 201302, end: 20130215
  3. COSUDEX [Suspect]
     Active Substance: BICALUTAMIDE
     Indication: PROSTATE CANCER
     Route: 048
     Dates: start: 2012
  4. COSUDEX [Suspect]
     Active Substance: BICALUTAMIDE
     Indication: PROSTATE CANCER
     Route: 048
     Dates: start: 201302, end: 20130215

REACTIONS (6)
  - Death [Fatal]
  - Mouth ulceration [Recovered/Resolved]
  - Hot flush [Unknown]
  - Metastases to spine [Unknown]
  - Malignant melanoma [Unknown]
  - Pain [Unknown]

NARRATIVE: CASE EVENT DATE: 19990901
